FAERS Safety Report 6133831-0 (Version None)
Quarter: 2009Q1

REPORT INFORMATION
  Report Type: 
  Country: None (occurrence: None)
  Receive Date: 20090326
  Receipt Date: 20090318
  Transmission Date: 20090719
  Serious: Yes (Hospitalization)
  Sender: FDA-Public Use
  Company Number: US-GILEAD-2009-0020932

PATIENT
  Sex: Female
  Weight: 72.64 kg

DRUGS (9)
  1. LETAIRIS [Suspect]
     Indication: PULMONARY ARTERIAL HYPERTENSION
  2. LASIX [Concomitant]
  3. SPIRONOLACTONE [Concomitant]
  4. LIPITOR [Concomitant]
  5. GABAPENTIN [Concomitant]
  6. K-DUR [Concomitant]
  7. ACIPHEX [Concomitant]
  8. FLEXERIL [Concomitant]
  9. ZOLOFT [Concomitant]

REACTIONS (1)
  - CONVULSION [None]
